FAERS Safety Report 5471658-3 (Version None)
Quarter: 2007Q3

REPORT INFORMATION
  Report Type: 
  Country: None (occurrence: None)
  Receive Date: 20070928
  Receipt Date: 20070307
  Transmission Date: 20080115
  Serious: No
  Sender: FDA-Public Use
  Company Number: US-BRISTOL-MYERS SQUIBB COMPANY-13705272

PATIENT
  Age: 57 Year
  Sex: Female
  Weight: 64 kg

DRUGS (15)
  1. DEFINITY [Suspect]
     Route: 040
  2. CEFTRIAXONE [Concomitant]
  3. RISPERIDONE [Concomitant]
  4. METOPROLOL TARTRATE [Concomitant]
  5. POTASSIUM CHLORIDE [Concomitant]
  6. NEXIUM [Concomitant]
  7. REGLAN [Concomitant]
  8. ATIVAN [Concomitant]
  9. IRON [Concomitant]
  10. DETROL LA [Concomitant]
  11. CYMBALTA [Concomitant]
  12. ALBUTEROL [Concomitant]
  13. INSULIN [Concomitant]
  14. PERCOCET [Concomitant]
  15. MORPHINE [Concomitant]

REACTIONS (1)
  - BACK PAIN [None]
